FAERS Safety Report 6766413-8 (Version None)
Quarter: 2010Q2

REPORT INFORMATION
  Report Type: 
  Country: None (occurrence: None)
  Receive Date: 20100611
  Receipt Date: 20100602
  Transmission Date: 20101027
  Serious: Yes (Hospitalization)
  Sender: FDA-Public Use
  Company Number: JP-JNJFOC-20100508282

PATIENT
  Age: 67 Year
  Sex: Male
  Weight: 73 kg

DRUGS (5)
  1. REMICADE [Suspect]
     Indication: PSORIASIS
     Route: 042
  2. REMICADE [Suspect]
     Route: 042
  3. MEROPENEM [Suspect]
     Indication: DRUG USE FOR UNKNOWN INDICATION
     Route: 042
  4. DERMOVATE [Concomitant]
     Indication: PSORIASIS
  5. OXAROL [Concomitant]
     Indication: PSORIASIS

REACTIONS (2)
  - HEPATIC FUNCTION ABNORMAL [None]
  - PNEUMONIA LEGIONELLA [None]
